FAERS Safety Report 17532488 (Version 1)
Quarter: 2020Q1

REPORT INFORMATION
  Report Type: Spontaneous
  Country: HR (occurrence: HR)
  Receive Date: 20200312
  Receipt Date: 20200312
  Transmission Date: 20200409
  Serious: Yes (Hospitalization)
  Sender: FDA-Public Use
  Company Number: HR-JNJFOC-20200300923

PATIENT
  Age: 41 Year
  Sex: Female

DRUGS (8)
  1. DIAZEPAM. [Concomitant]
     Active Substance: DIAZEPAM
     Dosage: 250 ML F.O.X 2
     Route: 030
  2. CLOZAPINE. [Concomitant]
     Active Substance: CLOZAPINE
     Dosage: 1-0-2
     Dates: start: 201805
  3. VORTIOXETINE. [Concomitant]
     Active Substance: VORTIOXETINE
     Dosage: 1-1-0 FROM MAY-2018; CHANGED TO 0-1-1 FROM NOV-2018
     Dates: start: 201805
  4. XEPLION [Suspect]
     Active Substance: PALIPERIDONE PALMITATE
     Indication: SCHIZOPHRENIA
     Route: 030
     Dates: start: 201711, end: 201805
  5. CO-AMOXICLAV                       /02043401/ [Concomitant]
     Active Substance: AMOXICILLIN\CLAVULANIC ACID
     Dosage: 2X1 G
     Route: 042
  6. XEPLION [Suspect]
     Active Substance: PALIPERIDONE PALMITATE
     Route: 030
     Dates: start: 201805, end: 201810
  7. XEPLION [Suspect]
     Active Substance: PALIPERIDONE PALMITATE
     Route: 030
     Dates: start: 201810, end: 202002
  8. BIPERIDEN [Concomitant]
     Active Substance: BIPERIDEN
     Dosage: 1-1-0
     Dates: start: 201805

REACTIONS (4)
  - Suicide attempt [Recovered/Resolved]
  - Hallucination, auditory [Recovered/Resolved]
  - Toxicity to various agents [Unknown]
  - Extrapyramidal disorder [Recovered/Resolved]

NARRATIVE: CASE EVENT DATE: 20180426
